FAERS Safety Report 4970416-3 (Version None)
Quarter: 2006Q2

REPORT INFORMATION
  Report Type: 
  Country: None (occurrence: None)
  Receive Date: 20060412
  Receipt Date: 20060404
  Transmission Date: 20061013
  Serious: Yes (Other)
  Sender: FDA-Public Use
  Company Number: US-KINGPHARMUSA00001-K200600421

PATIENT
  Sex: Female

DRUGS (3)
  1. FLORINEF [Suspect]
  2. HYDROCORTISONE [Concomitant]
  3. ANTIDEPRESSANT [Concomitant]

REACTIONS (1)
  - BLOOD PRESSURE DECREASED [None]
